FAERS Safety Report 14197103 (Version 1)
Quarter: 2017Q4

REPORT INFORMATION
  Report Type: Report from Study
  Country: CA (occurrence: CA)
  Receive Date: 20171116
  Receipt Date: 20171116
  Transmission Date: 20180321
  Serious: Yes (Death, Hospitalization)
  Sender: FDA-Public Use
  Company Number: CA-ACTELION-A-NJ2017-157498

PATIENT
  Age: 71 Year
  Sex: Female

DRUGS (13)
  1. OPSUMIT [Suspect]
     Active Substance: MACITENTAN
     Indication: PULMONARY ARTERIAL HYPERTENSION
     Dosage: 10 MG, QD
     Route: 048
     Dates: start: 20160310
  2. TECTA [Concomitant]
     Active Substance: PANTOPRAZOLE MAGNESIUM
  3. ADCIRCA [Suspect]
     Active Substance: TADALAFIL
     Indication: PRODUCT USED FOR UNKNOWN INDICATION
     Route: 065
  4. PANTOLOC [Concomitant]
     Active Substance: PANTOPRAZOLE SODIUM
  5. ALLOPURINOL. [Concomitant]
     Active Substance: ALLOPURINOL
  6. TELMISARTAN. [Concomitant]
     Active Substance: TELMISARTAN
  7. VITAMIN D [Concomitant]
     Active Substance: CHOLECALCIFEROL
  8. LASIX [Concomitant]
     Active Substance: FUROSEMIDE
  9. HCTZ [Concomitant]
     Active Substance: HYDROCHLOROTHIAZIDE
  10. FISH OIL [Concomitant]
     Active Substance: FISH OIL
  11. REVATIO [Concomitant]
     Active Substance: SILDENAFIL CITRATE
  12. AMLODIPINE [Concomitant]
     Active Substance: AMLODIPINE BESYLATE
  13. LEVOTHYROXINE. [Concomitant]
     Active Substance: LEVOTHYROXINE

REACTIONS (4)
  - Rash generalised [Not Recovered/Not Resolved]
  - Pyrexia [Unknown]
  - Malaise [Unknown]
  - Death [Fatal]

NARRATIVE: CASE EVENT DATE: 20170726
